FAERS Safety Report 4829789-4 (Version None)
Quarter: 2005Q4

REPORT INFORMATION
  Report Type: 
  Country: None (occurrence: None)
  Receive Date: 20051028
  Receipt Date: 20050808
  Transmission Date: 20060501
  Serious: No
  Sender: FDA-Public Use
  Company Number: COT_0178_2005

PATIENT
  Age: 43 Year
  Sex: Male
  Weight: 60.782 kg

DRUGS (13)
  1. VENTAVIS [Suspect]
     Indication: PULMONARY HYPERTENSION
     Dosage: 5 MCG 6XD IH
     Route: 055
     Dates: start: 20050719
  2. ALDACTONE [Concomitant]
  3. PROTONIX [Concomitant]
  4. THEO-DUR [Concomitant]
  5. COUMADIN [Concomitant]
  6. DIGOXIN [Concomitant]
  7. ADVAIR INHALER [Concomitant]
  8. AMARYL [Concomitant]
  9. ZYRTEC [Concomitant]
  10. SILDENAFIL CITRATE [Concomitant]
  11. ASCORBIC ACID [Concomitant]
  12. COMBIVENT [Concomitant]
  13. TRACLEER [Concomitant]

REACTIONS (5)
  - CHEST DISCOMFORT [None]
  - COUGH [None]
  - FEELING HOT [None]
  - FLUSHING [None]
  - INSOMNIA [None]
